FAERS Safety Report 10567740 (Version 1)
Quarter: 2014Q4

REPORT INFORMATION
  Report Type: Spontaneous
  Country: US (occurrence: None)
  Receive Date: 20141105
  Receipt Date: 20141105
  Transmission Date: 20150529
  Serious: No
  Sender: FDA-Public Use
  Company Number: None

PATIENT
  Age: 46 Year
  Sex: Female

DRUGS (1)
  1. NORDITROPIN [Suspect]
     Active Substance: SOMATROPIN
     Indication: HYPOTHALAMO-PITUITARY DISORDER
     Route: 058
     Dates: start: 201410, end: 20141020

REACTIONS (5)
  - Arthralgia [None]
  - Oropharyngeal pain [None]
  - Swelling face [None]
  - Joint swelling [None]
  - Rhinorrhoea [None]

NARRATIVE: CASE EVENT DATE: 201410
